FAERS Safety Report 24143749 (Version 2)
Quarter: 2024Q3

REPORT INFORMATION
  Report Type: Report from Study
  Country: US (occurrence: US)
  Receive Date: 20240727
  Receipt Date: 20240821
  Transmission Date: 20241017
  Serious: Yes (Other)
  Sender: ABBVIE
  Company Number: US-ABBVIE-5852187

PATIENT
  Sex: Female

DRUGS (1)
  1. LINZESS [Suspect]
     Active Substance: LINACLOTIDE
     Indication: Gastrointestinal bacterial overgrowth
     Route: 048
     Dates: start: 2019

REACTIONS (2)
  - Coronary arterial stent insertion [Recovering/Resolving]
  - Intestinal resection [Recovering/Resolving]
